FAERS Safety Report 6445418-0 (Version None)
Quarter: 2009Q4

REPORT INFORMATION
  Report Type: 
  Country: None (occurrence: None)
  Receive Date: 20091118
  Receipt Date: 20091110
  Transmission Date: 20100525
  Serious: Yes (Other)
  Sender: FDA-Public Use
  Company Number: PHEH2009US14290

PATIENT
  Sex: Male

DRUGS (11)
  1. GLEEVEC [Suspect]
     Indication: CHRONIC MYELOID LEUKAEMIA
     Dosage: 400 MG, QD
     Dates: start: 20090701, end: 20090901
  2. PRILOSEC [Concomitant]
     Dosage: 20 MG, QD
     Route: 048
  3. PRINIVIL [Concomitant]
     Dosage: 20 MG, QD
     Route: 048
  4. GLIPIZIDE [Concomitant]
     Dosage: 7.5 MG, UNK
     Route: 048
  5. LOPID [Concomitant]
     Dosage: 600 MG, BID
     Route: 048
  6. COREG [Concomitant]
     Dosage: 6.25 MG, BID
     Route: 048
  7. HYDROCHLOROTHIAZIDE [Concomitant]
     Dosage: 12.5 MG, UNK
  8. GABAPENTIN [Concomitant]
     Dosage: 300 MG, UNK
  9. NOVOLIN N [Concomitant]
     Dosage: UNK
     Route: 058
  10. COENZYME Q10 [Concomitant]
     Dosage: 100 MG, QD
     Route: 048
  11. ASCORBIC ACID [Concomitant]
     Dosage: 500 MG, QD
     Route: 048

REACTIONS (4)
  - ANGIOEDEMA [None]
  - DYSPHAGIA [None]
  - DYSPNOEA [None]
  - PHARYNGEAL OEDEMA [None]
